FAERS Safety Report 7877415-2 (Version None)
Quarter: 2011Q4

REPORT INFORMATION
  Report Type: 
  Country: None (occurrence: None)
  Receive Date: 20111031
  Receipt Date: 20111025
  Transmission Date: 20120403
  Serious: Yes (Hospitalization, Other)
  Sender: FDA-Public Use
  Company Number: US-ROXANE LABORATORIES, INC.-2011-RO-01540RO

PATIENT
  Age: 67 Year
  Sex: Female

DRUGS (8)
  1. CYCLOPHOSPHAMIDE [Suspect]
     Indication: WEGENER'S GRANULOMATOSIS
  2. PREDNISONE [Suspect]
     Indication: WEGENER'S GRANULOMATOSIS
  3. MYCOPHENOLATE MOFETIL [Suspect]
     Dosage: 1.5 G
  4. CYCLOPHOSPHAMIDE [Suspect]
     Indication: INTERSTITIAL LUNG DISEASE
  5. SILDENAFIL [Suspect]
     Indication: PULMONARY HYPERTENSION
  6. MYCOPHENOLATE MOFETIL [Suspect]
     Indication: WEGENER'S GRANULOMATOSIS
     Dosage: 500 MG
  7. MYCOPHENOLATE MOFETIL [Suspect]
     Indication: INTERSTITIAL LUNG DISEASE
     Dosage: 2000 MG
  8. PREDNISONE [Suspect]
     Indication: INTERSTITIAL LUNG DISEASE

REACTIONS (5)
  - DRUG INEFFECTIVE [None]
  - HYPERGLYCAEMIA [None]
  - ALVEOLAR PROTEINOSIS [None]
  - RENAL IMPAIRMENT [None]
  - MYOPATHY [None]
